FAERS Safety Report 6894357-X (Version None)
Quarter: 2010Q3

REPORT INFORMATION
  Report Type: 
  Country: None (occurrence: None)
  Receive Date: 20100802
  Receipt Date: 20100719
  Transmission Date: 20110219
  Serious: Yes (Other)
  Sender: FDA-Public Use
  Company Number: DE-RANBAXY-2010RR-36383

PATIENT
  Age: 79 Year
  Sex: Female

DRUGS (9)
  1. OMEPRAZOLE [Suspect]
     Indication: EXTRANODAL MARGINAL ZONE B-CELL LYMPHOMA (MALT TYPE)
     Dosage: 40 MG, UNK
     Route: 048
     Dates: start: 20050101
  2. METOPROLOL TARTRATE [Suspect]
     Indication: CORONARY ARTERY DISEASE
     Dosage: 95 MG, QD
     Route: 048
     Dates: start: 20090301
  3. SIMVASTATIN [Suspect]
     Indication: CORONARY ARTERY DISEASE
     Dosage: 20 MG, UNK
     Route: 048
     Dates: start: 20090901
  4. METFORMIN 850 [Concomitant]
     Dosage: 2.5 DF, UNK
  5. GLIMEPIRIDE [Concomitant]
     Dosage: 1.5 DF, UNK
  6. ASPIRIN [Concomitant]
     Dosage: 1 DF, UNK
  7. HCT 25 [Concomitant]
     Dosage: 1 DF, UNK
  8. CORIFEO 20 [Concomitant]
     Dosage: 0.5 DF, UNK
  9. RAMIPRIL 10 [Concomitant]
     Dosage: 1 DF, UNK

REACTIONS (1)
  - PATHOLOGICAL FRACTURE [None]
